FAERS Safety Report 24287441 (Version 2)
Quarter: 2025Q1

REPORT INFORMATION
  Report Type: Spontaneous
  Country: CA (occurrence: CA)
  Receive Date: 20240905
  Receipt Date: 20250219
  Transmission Date: 20250409
  Serious: Yes (Other)
  Sender: BAUSCH AND LOMB
  Company Number: CA-BAUSCH-BL-2024-013269

PATIENT
  Age: 68 Year
  Sex: Male

DRUGS (4)
  1. METFORMIN [Suspect]
     Active Substance: METFORMIN HYDROCHLORIDE
     Indication: Product used for unknown indication
     Route: 065
  2. ELIGARD [Suspect]
     Active Substance: LEUPROLIDE ACETATE
     Indication: Prostate cancer
     Dosage: POWDER FOR SUSPENSION, SUSTAINED RELEASE (7 ADMINISTRATIONS)
     Route: 058
  3. ELIGARD [Suspect]
     Active Substance: LEUPROLIDE ACETATE
     Dosage: POWDER FOR SUSPENSION, SUSTAINED RELEASE
     Route: 058
  4. XTANDI [Suspect]
     Active Substance: ENZALUTAMIDE
     Indication: Prostatic specific antigen increased
     Route: 065

REACTIONS (5)
  - Blood pressure fluctuation [Unknown]
  - Hot flush [Unknown]
  - Injection site mass [Unknown]
  - Hypertension [Unknown]
  - Weight decreased [Unknown]
